FAERS Safety Report 9477784 (Version 2)
Quarter: 2013Q3

REPORT INFORMATION
  Report Type: Spontaneous
  Country: US (occurrence: US)
  Receive Date: 20130827
  Receipt Date: 20130827
  Transmission Date: 20140515
  Serious: Yes (Other)
  Sender: FDA-Public Use
  Company Number: US-ASTRAZENECA-2013SE63008

PATIENT
  Age: 67 Year
  Sex: Female
  Weight: 86.2 kg

DRUGS (12)
  1. NEXIUM [Suspect]
     Indication: GASTROOESOPHAGEAL REFLUX DISEASE
     Route: 048
     Dates: start: 2001, end: 2012
  2. NEXIUM [Suspect]
     Indication: ABDOMINAL DISCOMFORT
     Route: 048
     Dates: start: 2001, end: 2012
  3. NEXIUM [Suspect]
     Indication: VOMITING
     Route: 048
     Dates: start: 2001, end: 2012
  4. NEXIUM [Suspect]
     Indication: GASTROOESOPHAGEAL REFLUX DISEASE
     Route: 048
     Dates: start: 2001, end: 2012
  5. NEXIUM [Suspect]
     Indication: GASTROOESOPHAGEAL REFLUX DISEASE
     Route: 048
     Dates: start: 2012
  6. NEXIUM [Suspect]
     Indication: ABDOMINAL DISCOMFORT
     Route: 048
     Dates: start: 2012
  7. NEXIUM [Suspect]
     Indication: VOMITING
     Route: 048
     Dates: start: 2012
  8. NEXIUM [Suspect]
     Indication: GASTROOESOPHAGEAL REFLUX DISEASE
     Route: 048
     Dates: start: 2012
  9. MOOD STABILIZERS [Concomitant]
     Indication: MOOD SWINGS
  10. TAGAMET [Concomitant]
     Route: 048
     Dates: start: 201301
  11. AMITRIPTYLINE [Concomitant]
     Indication: BIPOLAR DISORDER
     Route: 048
     Dates: start: 1980
  12. FIORICET [Concomitant]
     Indication: HEADACHE
     Dosage: PRN
     Route: 048
     Dates: start: 201301

REACTIONS (9)
  - Haematemesis [Unknown]
  - Anxiety [Unknown]
  - Tachyphrenia [Unknown]
  - Gastrooesophageal reflux disease [Unknown]
  - Weight increased [Unknown]
  - Fall [Unknown]
  - Injury [Unknown]
  - Pain in extremity [Unknown]
  - Drug dose omission [Unknown]
